FAERS Safety Report 5417945-6 (Version None)
Quarter: 2007Q3

REPORT INFORMATION
  Report Type: 
  Country: None (occurrence: None)
  Receive Date: 20070817
  Receipt Date: 20070808
  Transmission Date: 20080115
  Serious: Yes (Other)
  Sender: FDA-Public Use
  Company Number: US-JNJFOC-20070802773

PATIENT
  Sex: Female
  Weight: 92.08 kg

DRUGS (1)
  1. REMICADE [Suspect]
     Indication: PSORIATIC ARTHROPATHY
     Route: 042

REACTIONS (4)
  - RASH MACULAR [None]
  - SKIN EXFOLIATION [None]
  - SWELLING [None]
  - TYPE IV HYPERSENSITIVITY REACTION [None]
